FAERS Safety Report 4344747-4 (Version None)
Quarter: 2004Q2

REPORT INFORMATION
  Report Type: 
  Country: None (occurrence: None)
  Receive Date: 20040423
  Receipt Date: 20040415
  Transmission Date: 20050107
  Serious: Yes (Other)
  Sender: FDA-Public Use
  Company Number: PHEH2004US04307

PATIENT
  Sex: Male

DRUGS (2)
  1. LAMISIL [Suspect]
     Dosage: 250 MG, QD
     Route: 048
  2. ANTIHYPERTENSIVES [Concomitant]

REACTIONS (1)
  - PRIAPISM [None]
